FAERS Safety Report 7042707-6 (Version None)
Quarter: 2010Q4

REPORT INFORMATION
  Report Type: 
  Country: None (occurrence: None)
  Receive Date: 20101013
  Receipt Date: 20100630
  Transmission Date: 20110411
  Serious: No
  Sender: FDA-Public Use
  Company Number: US-ASTRAZENECA-2010SE30707

PATIENT
  Age: 26758 Day
  Sex: Male
  Weight: 86.2 kg

DRUGS (8)
  1. SYMBICORT [Suspect]
     Dosage: 160/4.5, 2 PUFFS
     Route: 055
  2. SYMBICORT [Suspect]
     Dosage: 160/4.5, 2 PUFFS
     Route: 055
     Dates: start: 20100626
  3. ASPIRIN [Concomitant]
  4. LIPITOR [Concomitant]
  5. LANOXIN [Concomitant]
  6. CARDIA XP [Concomitant]
  7. RESCUE INHALER [Concomitant]
  8. PROTONIX [Concomitant]

REACTIONS (3)
  - CHOKING [None]
  - COUGH [None]
  - DYSPNOEA [None]
